FAERS Safety Report 12198541 (Version 1)
Quarter: 2016Q1

REPORT INFORMATION
  Report Type: Spontaneous
  Country: US (occurrence: None)
  Receive Date: 20160321
  Receipt Date: 20160321
  Transmission Date: 20160526
  Serious: No
  Sender: FDA-Public Use
  Company Number: None

PATIENT
  Age: 29 Year
  Sex: Female
  Weight: 87.54 kg

DRUGS (7)
  1. SUMATRIPTAIN [Concomitant]
  2. IBUPROFEN. [Concomitant]
     Active Substance: IBUPROFEN
  3. MIRENA [Suspect]
     Active Substance: LEVONORGESTREL
     Dates: start: 20120125, end: 20160313
  4. TOPIRIMATE [Concomitant]
  5. OMEPRAZOLE. [Concomitant]
     Active Substance: OMEPRAZOLE
  6. TYLENOL [Concomitant]
     Active Substance: ACETAMINOPHEN
  7. FLUOXETINE [Concomitant]
     Active Substance: FLUOXETINE HYDROCHLORIDE

REACTIONS (7)
  - Anger [None]
  - Migraine [None]
  - Mood swings [None]
  - Post-traumatic stress disorder [None]
  - Fluid retention [None]
  - Anxiety [None]
  - Weight increased [None]

NARRATIVE: CASE EVENT DATE: 20120125
